FAERS Safety Report 25980038 (Version 1)
Quarter: 2025Q4

REPORT INFORMATION
  Report Type: Spontaneous
  Country: US (occurrence: None)
  Receive Date: 20251029
  Receipt Date: 20251029
  Transmission Date: 20260118
  Serious: Yes (Disabling, Other)
  Sender: FDA-CTU
  Company Number: None

PATIENT
  Age: 29 Year
  Sex: Female
  Weight: 69.75 kg

DRUGS (6)
  1. BUPROPION [Suspect]
     Active Substance: BUPROPION
     Indication: Depression
     Dates: start: 20210301, end: 20220601
  2. BUPROPION [Suspect]
     Active Substance: BUPROPION
     Indication: Anxiety
  3. ESTRADIOL [Concomitant]
     Active Substance: ESTRADIOL
  4. VITAMINS [Concomitant]
     Active Substance: VITAMINS
  5. CREATINE [Concomitant]
     Active Substance: CREATINE
  6. MAGNESIUM [Concomitant]
     Active Substance: MAGNESIUM

REACTIONS (3)
  - Libido decreased [None]
  - Genital hypoaesthesia [None]
  - Vulvovaginal dryness [None]

NARRATIVE: CASE EVENT DATE: 20210701
